FAERS Safety Report 6873286-1 (Version None)
Quarter: 2010Q3

REPORT INFORMATION
  Report Type: 
  Country: None (occurrence: None)
  Receive Date: 20100723
  Receipt Date: 20090129
  Transmission Date: 20110219
  Serious: Yes (Death)
  Sender: FDA-Public Use
  Company Number: US-PFIZER INC-2008156027

PATIENT
  Sex: Male
  Weight: 81.633 kg

DRUGS (7)
  1. CHANTIX [Suspect]
     Indication: TOBACCO USER
     Dosage: UNK
     Route: 048
     Dates: start: 20080820
  2. CHANTIX [Suspect]
     Indication: SMOKING CESSATION THERAPY
  3. ACETAMINOPHEN [Concomitant]
  4. IBUPROFEN [Concomitant]
  5. GABAPENTIN [Concomitant]
  6. TRAMADOL [Concomitant]
  7. MELOXICAM [Concomitant]

REACTIONS (1)
  - COMPLETED SUICIDE [None]
